FAERS Safety Report 6454724-5 (Version None)
Quarter: 2009Q4

REPORT INFORMATION
  Report Type: 
  Country: None (occurrence: None)
  Receive Date: 20091118
  Receipt Date: 20091110
  Transmission Date: 20100525
  Serious: Yes (Death, Hospitalization)
  Sender: FDA-Public Use
  Company Number: 2009JP004278

PATIENT
  Age: 81 Year
  Sex: Male

DRUGS (8)
  1. PROGRAF [Suspect]
     Indication: RHEUMATOID ARTHRITIS
     Dosage: 2 MG, UID/QD, ORAL; 1 MG, UID/QD, ORAL
     Dates: start: 20090225, end: 20090702
  2. PROGRAF [Suspect]
     Indication: RHEUMATOID ARTHRITIS
     Dosage: 2 MG, UID/QD, ORAL; 1 MG, UID/QD, ORAL
     Dates: start: 20090703, end: 20090705
  3. PREDNISOLONE [Concomitant]
  4. LANSOPRAZOLE [Concomitant]
  5. KLARICID (CLARITHROMYCIN) TABLET [Concomitant]
  6. DIOVAN [Concomitant]
  7. THEO-DUR [Concomitant]
  8. HISRACK (ETODOLAC) [Concomitant]

REACTIONS (5)
  - DRUG LEVEL INCREASED [None]
  - FALL [None]
  - INCORRECT DOSE ADMINISTERED [None]
  - PNEUMONIA [None]
  - PNEUMONIA ASPIRATION [None]
